FAERS Safety Report 8250409-3 (Version None)
Quarter: 2012Q2

REPORT INFORMATION
  Report Type: 
  Country: None (occurrence: None)
  Receive Date: 20120402
  Receipt Date: 20120321
  Transmission Date: 20120825
  Serious: Yes (Hospitalization)
  Sender: FDA-Public Use
  Company Number: JP-PFIZER INC-2012079532

PATIENT
  Age: 90 Year
  Sex: Female

DRUGS (8)
  1. MUCODYNE [Concomitant]
  2. ZOLPIDEM [Suspect]
     Route: 048
  3. ETIZOLAM [Concomitant]
  4. INDERAL [Concomitant]
  5. CELEBREX [Suspect]
     Dosage: 100 MG, 2X/DAY
     Route: 048
     Dates: start: 20120207, end: 20120209
  6. ALFAROL [Concomitant]
  7. TRITEREN [Concomitant]
  8. PRAVASTATIN [Concomitant]
     Route: 048

REACTIONS (1)
  - MYOSITIS [None]
